FAERS Safety Report 6318577-8 (Version None)
Quarter: 2009Q3

REPORT INFORMATION
  Report Type: 
  Country: None (occurrence: None)
  Receive Date: 20090821
  Receipt Date: 20090817
  Transmission Date: 20100115
  Serious: Yes (Death)
  Sender: FDA-Public Use
  Company Number: PHEH2009US09555

PATIENT
  Sex: Female
  Weight: 104.5 kg

DRUGS (4)
  1. GLEEVEC [Suspect]
     Indication: CHRONIC MYELOID LEUKAEMIA
     Dosage: 400 MG, QD
     Route: 048
     Dates: start: 20080601
  2. TRAMADOL [Concomitant]
  3. MOBIC [Concomitant]
  4. DIOVAN [Concomitant]

REACTIONS (1)
  - DEATH [None]
